FAERS Safety Report 5495394-2 (Version None)
Quarter: 2007Q4

REPORT INFORMATION
  Report Type: 
  Country: None (occurrence: None)
  Receive Date: 20071023
  Receipt Date: 20071008
  Transmission Date: 20080405
  Serious: Yes (Hospitalization)
  Sender: FDA-Public Use
  Company Number: US-CVT-070145

PATIENT
  Age: 76 Year
  Sex: Male

DRUGS (15)
  1. RANEXA [Suspect]
     Indication: ANGINA UNSTABLE
     Dosage: 500 MG, BID, ORAL : 500 MG, QD, ORAL : 750 MG, QD, ORAL
     Route: 048
     Dates: start: 20061003, end: 20061122
  2. RANEXA [Suspect]
     Indication: ANGINA UNSTABLE
     Dosage: 500 MG, BID, ORAL : 500 MG, QD, ORAL : 750 MG, QD, ORAL
     Route: 048
     Dates: start: 20061125
  3. RANEXA [Suspect]
     Indication: ANGINA UNSTABLE
     Dosage: 500 MG, BID, ORAL : 500 MG, QD, ORAL : 750 MG, QD, ORAL
     Route: 048
     Dates: start: 20061125
  4. CARDIZEM [Suspect]
     Dosage: 120 MG, QD, ORAL
     Route: 048
     Dates: start: 20061003, end: 20061122
  5. COREG [Concomitant]
  6. IMDUR [Concomitant]
  7. ASPIRIN [Concomitant]
  8. COUMADIN [Concomitant]
  9. LIPITOR [Concomitant]
  10. GLUCOPHAGE/00082701/(METFORMIN) [Concomitant]
  11. PROTONIX/01263201/(PANTOPRAZOLE) [Concomitant]
  12. LOPRESSOR [Concomitant]
  13. VASOTEC [Concomitant]
  14. PRINIVIL [Concomitant]
  15. OMEGA-3 TRIGLYCERIDES [Concomitant]

REACTIONS (2)
  - CARDIAC FAILURE CONGESTIVE [None]
  - MYOCARDIAL INFARCTION [None]
